FAERS Safety Report 11874854 (Version 2)
Quarter: 2016Q1

REPORT INFORMATION
  Report Type: Spontaneous
  Country: JP (occurrence: JP)
  Receive Date: 20151229
  Receipt Date: 20160121
  Transmission Date: 20160526
  Serious: Yes (Hospitalization)
  Sender: FDA-Public Use
  Company Number: JP-SA-2015SA220383

PATIENT
  Age: 4 Year
  Sex: Female

DRUGS (1)
  1. CEREZYME [Suspect]
     Active Substance: IMIGLUCERASE
     Indication: GAUCHER^S DISEASE TYPE I
     Route: 041
     Dates: end: 20151008

REACTIONS (3)
  - Epstein-Barr virus infection [Recovered/Resolved]
  - Splenomegaly [Unknown]
  - Anaemia [Unknown]

NARRATIVE: CASE EVENT DATE: 201510
